FAERS Safety Report 18409700 (Version 1)
Quarter: 2020Q4

REPORT INFORMATION
  Report Type: Spontaneous
  Country: US (occurrence: US)
  Receive Date: 20201021
  Receipt Date: 20201021
  Transmission Date: 20210114
  Serious: No
  Sender: FDA-Public Use
  Company Number: None

PATIENT
  Age: 30 Year
  Sex: Female
  Weight: 88 kg

DRUGS (2)
  1. ETONOGESTREL/ETHINYL ESTRADIOL [Suspect]
     Active Substance: ETHINYL ESTRADIOL\ETONOGESTREL
     Indication: CONTRACEPTION
     Dosage: ?          OTHER DOSE:0.12MG-0.015MG;?
     Route: 067
     Dates: start: 202007, end: 202010
  2. ELURYNG [Suspect]
     Active Substance: ETHINYL ESTRADIOL\ETONOGESTREL
     Indication: CONTRACEPTION
     Dosage: ?          OTHER DOSE:0.12MG-0.015MG;?
     Route: 067
     Dates: start: 201912, end: 202007

REACTIONS (4)
  - Anxiety [None]
  - Affective disorder [None]
  - Weight increased [None]
  - Irritability [None]
